FAERS Safety Report 19798071 (Version 1)
Quarter: 2021Q3

REPORT INFORMATION
  Report Type: Spontaneous
  Country: US (occurrence: US)
  Receive Date: 20210907
  Receipt Date: 20210907
  Transmission Date: 20211014
  Serious: No
  Sender: FDA-Public Use
  Company Number: US-BIOGEN-2021BI01045979

PATIENT
  Sex: Female

DRUGS (1)
  1. TECFIDERA [Suspect]
     Active Substance: DIMETHYL FUMARATE
     Indication: MULTIPLE SCLEROSIS
     Route: 048

REACTIONS (7)
  - Fall [Recovered/Resolved]
  - Upper limb fracture [Unknown]
  - Dyspepsia [Unknown]
  - Benign lung neoplasm [Unknown]
  - Diplopia [Unknown]
  - Early satiety [Unknown]
  - Accident [Recovered/Resolved]
